FAERS Safety Report 20528279 (Version 1)
Quarter: 2022Q1

REPORT INFORMATION
  Report Type: Spontaneous
  Country: US (occurrence: None)
  Receive Date: 20220228
  Receipt Date: 20220228
  Transmission Date: 20220423
  Serious: Yes (unspecified)
  Sender: FDA-Public Use
  Company Number: None

PATIENT
  Age: 6 Year
  Sex: Female
  Weight: 18.7 kg

DRUGS (4)
  1. REMICADE [Suspect]
     Active Substance: INFLIXIMAB
     Indication: Crohn^s disease
     Dosage: OTHER FREQUENCY : ONE TIME INFUSION;?
     Route: 041
     Dates: start: 20220222, end: 20220222
  2. ZOFRAN [Concomitant]
     Active Substance: ONDANSETRON HYDROCHLORIDE
     Dates: start: 20220222, end: 20220222
  3. Diphenhydramine (Benadryl) [Concomitant]
     Dates: start: 20220222, end: 20220222
  4. Methylprednisolone (Solu-Cortef) [Concomitant]
     Dates: start: 20220222, end: 20220222

REACTIONS (8)
  - Vomiting [None]
  - Cough [None]
  - Diarrhoea [None]
  - Pallor [None]
  - Anxiety [None]
  - Infusion related reaction [None]
  - Anal incontinence [None]
  - Malaise [None]

NARRATIVE: CASE EVENT DATE: 20220222
